FAERS Safety Report 11200161 (Version 1)
Quarter: 2015Q2

REPORT INFORMATION
  Report Type: Report from Study
  Country: AU (occurrence: AU)
  Receive Date: 20150618
  Receipt Date: 20150618
  Transmission Date: 20150821
  Serious: Yes (Other)
  Sender: FDA-Public Use
  Company Number: PHHY2015AU068405

PATIENT
  Sex: Female

DRUGS (5)
  1. OSTELIN VITAMIN D [Concomitant]
     Active Substance: CHOLECALCIFEROL
     Indication: PRODUCT USED FOR UNKNOWN INDICATION
     Dosage: 25 UG (EQUIVALENT TO VIT D3 1000 IU), QD
     Route: 065
  2. ACLASTA [Suspect]
     Active Substance: ZOLEDRONIC ACID
     Indication: PRODUCT USED FOR UNKNOWN INDICATION
     Dosage: 1 DF (5 MG/100 ML), STAT
     Route: 042
  3. ATENOLOL. [Concomitant]
     Active Substance: ATENOLOL
     Indication: PRODUCT USED FOR UNKNOWN INDICATION
     Dosage: 50 MG, (1/2) DAILY - 5 REPEATS
     Route: 065
  4. ACLASTA [Suspect]
     Active Substance: ZOLEDRONIC ACID
     Dosage: 1 DF (5 MG/100 ML), STAT
     Route: 042
     Dates: start: 20140514
  5. ZOTON [Concomitant]
     Active Substance: LANSOPRAZOLE
     Indication: PRODUCT USED FOR UNKNOWN INDICATION
     Dosage: 30 MG, QD
     Route: 048

REACTIONS (29)
  - Deafness [Unknown]
  - Sleep apnoea syndrome [Unknown]
  - Helicobacter infection [Unknown]
  - Oesophagitis [Unknown]
  - Epidemic polyarthritis [Unknown]
  - Weight decreased [Unknown]
  - Vitamin B12 deficiency [Unknown]
  - Osteitis deformans [Unknown]
  - Omental infarction [Unknown]
  - Renal colic [Unknown]
  - Dermal cyst [Unknown]
  - Upper limb fracture [Unknown]
  - Normal pressure hydrocephalus [Unknown]
  - Femoral hernia [Unknown]
  - Blood parathyroid hormone increased [Unknown]
  - Gastric polyps [Unknown]
  - Gastric stenosis [Unknown]
  - Lymphoedema [Unknown]
  - Osteoporosis [Unknown]
  - Depression [Unknown]
  - Hiatus hernia [Unknown]
  - Nephrolithiasis [Unknown]
  - Gastric disorder [Unknown]
  - Chest pain [Unknown]
  - Sinusitis [Unknown]
  - Breast mass [Unknown]
  - Autoimmune disorder [Unknown]
  - Psychomotor hyperactivity [Unknown]
  - Arthralgia [Unknown]
